FAERS Safety Report 10166860 (Version 1)
Quarter: 2014Q2

REPORT INFORMATION
  Report Type: Spontaneous
  Country: GB (occurrence: None)
  Receive Date: 20140508
  Receipt Date: 20140508
  Transmission Date: 20141212
  Serious: Yes (Other)
  Sender: FDA-Public Use
  Company Number: AUR-APL-2014-05278

PATIENT
  Age: 70 Year
  Sex: Male

DRUGS (1)
  1. METFORMIN  (METFORMIN) [Suspect]
     Indication: PRODUCT USED FOR UNKNOWN INDICATION
     Dates: start: 20140210, end: 20140310

REACTIONS (5)
  - Cognitive disorder [None]
  - Feeling abnormal [None]
  - Disturbance in attention [None]
  - Disturbance in attention [None]
  - Social avoidant behaviour [None]
